FAERS Safety Report 23015314 (Version 1)
Quarter: 2023Q4

REPORT INFORMATION
  Report Type: Spontaneous
  Country: US (occurrence: US)
  Receive Date: 20231002
  Receipt Date: 20231002
  Transmission Date: 20240110
  Serious: No
  Sender: FDA-Public Use
  Company Number: US-Covis Pharma GmbH-2023COV01646

PATIENT
  Sex: Female

DRUGS (3)
  1. RILUZOLE [Suspect]
     Active Substance: RILUZOLE
  2. RADICAVA [Suspect]
     Active Substance: EDARAVONE
     Indication: Amyotrophic lateral sclerosis
  3. Relyviro [Concomitant]

REACTIONS (2)
  - Alopecia [Unknown]
  - Hepatic enzyme increased [Unknown]
